FAERS Safety Report 9087206 (Version 1)
Quarter: 2013Q1

REPORT INFORMATION
  Report Type: Spontaneous
  Country: IT (occurrence: IT)
  Receive Date: 20130217
  Receipt Date: 20130217
  Transmission Date: 20140127
  Serious: Yes (Hospitalization)
  Sender: FDA-Public Use
  Company Number: IT-TEVA-385617ISR

PATIENT
  Sex: Female

DRUGS (2)
  1. GABAPENTIN [Suspect]
  2. ZOLPIDEM [Suspect]

REACTIONS (2)
  - Vertigo [Unknown]
  - Femoral neck fracture [Unknown]
